FAERS Safety Report 13637826 (Version 1)
Quarter: 2017Q2

REPORT INFORMATION
  Report Type: Spontaneous
  Country: US (occurrence: US)
  Receive Date: 20170609
  Receipt Date: 20170609
  Transmission Date: 20170830
  Serious: No
  Sender: FDA-Public Use
  Company Number: US-BAYER-2017-098183

PATIENT
  Age: 5 Year
  Sex: Female
  Weight: 14 kg

DRUGS (1)
  1. CLARITIN [Suspect]
     Active Substance: LORATADINE
     Indication: RASH
     Dosage: 2 TEASPOONS TEASPOON
     Route: 048
     Dates: start: 20170523

REACTIONS (2)
  - Extra dose administered [Unknown]
  - Expired product administered [Unknown]

NARRATIVE: CASE EVENT DATE: 20170523
